FAERS Safety Report 13854158 (Version 2)
Quarter: 2017Q3

REPORT INFORMATION
  Report Type: Report from Study
  Country: FR (occurrence: FR)
  Receive Date: 20170810
  Receipt Date: 20170912
  Transmission Date: 20171127
  Serious: Yes (Other)
  Sender: FDA-Public Use
  Company Number: FR-VIIV HEALTHCARE LIMITED-FR2017GSK122811

PATIENT
  Sex: Male
  Weight: 70 kg

DRUGS (1)
  1. ABACAVIRSULPHATE+DOLUTEGRAVIR+LAMIVUDINE [Suspect]
     Active Substance: ABACAVIR SULFATE\DOLUTEGRAVIR SODIUM\LAMIVUDINE
     Indication: HIV INFECTION
     Dosage: UNK
     Dates: start: 20160324, end: 20160630

REACTIONS (7)
  - Neuropsychiatric symptoms [Recovered/Resolved]
  - Asthenia [Unknown]
  - Affective disorder [Unknown]
  - Weight decreased [Unknown]
  - Drug intolerance [Recovered/Resolved]
  - Decreased appetite [Unknown]
  - Insomnia [Unknown]

NARRATIVE: CASE EVENT DATE: 201606
